FAERS Safety Report 4380237-0 (Version None)
Quarter: 2004Q2

REPORT INFORMATION
  Report Type: 
  Country: None (occurrence: None)
  Receive Date: 20040616
  Receipt Date: 20040616
  Transmission Date: 20050107
  Serious: Yes (Hospitalization)
  Sender: FDA-Public Use
  Company Number: None

PATIENT
  Age: 66 Year
  Sex: Female
  Weight: 76.6579 kg

DRUGS (1)
  1. PRILOSEC OTC [Suspect]

REACTIONS (4)
  - DERMATITIS ALLERGIC [None]
  - PRURITUS GENERALISED [None]
  - SWELLING [None]
  - THROAT TIGHTNESS [None]
